FAERS Safety Report 4827897-5 (Version None)
Quarter: 2005Q4

REPORT INFORMATION
  Report Type: 
  Country: None (occurrence: None)
  Receive Date: 20051110
  Receipt Date: 20051026
  Transmission Date: 20060501
  Serious: Yes (Hospitalization)
  Sender: FDA-Public Use
  Company Number: USA0510112162

PATIENT
  Sex: Male

DRUGS (2)
  1. HUMATROPE [Suspect]
     Dosage: 0.8 MG
     Dates: start: 20050209, end: 20050919
  2. TESTOSTERONE [Concomitant]

REACTIONS (8)
  - BIPOLAR DISORDER [None]
  - BLOOD GROWTH HORMONE DECREASED [None]
  - BLOOD TESTOSTERONE DECREASED [None]
  - DISTURBANCE IN ATTENTION [None]
  - DRUG SCREEN POSITIVE [None]
  - MANIA [None]
  - PAIN [None]
  - SLEEP APNOEA SYNDROME [None]
